FAERS Safety Report 24391800 (Version 1)
Quarter: 2024Q4

REPORT INFORMATION
  Report Type: Other
  Country: FR (occurrence: FR)
  Receive Date: 20241003
  Receipt Date: 20241003
  Transmission Date: 20250115
  Serious: Yes (Death, Other)
  Sender: Velzen Pharma
  Company Number: FR-Velzen pharma pvt ltd-2162429

PATIENT
  Age: 55 Year
  Sex: Female

DRUGS (10)
  1. DOXEPIN HYDROCHLORIDE [Suspect]
     Active Substance: DOXEPIN HYDROCHLORIDE
     Indication: Product used for unknown indication
  2. OXYCODONE [Suspect]
     Active Substance: OXYCODONE
  3. ZOPICLONE [Concomitant]
     Active Substance: ZOPICLONE
  4. DULOXETINE [Concomitant]
     Active Substance: DULOXETINE
  5. PRAZEPAM [Concomitant]
     Active Substance: PRAZEPAM
  6. ALPRAZOLAM [Concomitant]
     Active Substance: ALPRAZOLAM
  7. DESMETRAMADOL [Suspect]
     Active Substance: DESMETRAMADOL
  8. OXYCODONE [Suspect]
     Active Substance: OXYCODONE
  9. MORPHINE SULFATE [Suspect]
     Active Substance: MORPHINE SULFATE
  10. TRAMADOL [Suspect]
     Active Substance: TRAMADOL

REACTIONS (5)
  - Pulmonary congestion [Fatal]
  - Intentional overdose [Unknown]
  - Toxicity to various agents [Fatal]
  - Bezoar [Fatal]
  - Congestive hepatopathy [Fatal]
